FAERS Safety Report 17257314 (Version 8)
Quarter: 2022Q4

REPORT INFORMATION
  Report Type: Spontaneous
  Country: US (occurrence: US)
  Receive Date: 20200110
  Receipt Date: 20221102
  Transmission Date: 20230113
  Serious: Yes (Hospitalization, Other)
  Sender: FDA-Public Use
  Company Number: US-PFIZER INC-2020009993

PATIENT
  Age: 76 Year
  Sex: Female
  Weight: 74.03 kg

DRUGS (4)
  1. XELJANZ XR [Suspect]
     Active Substance: TOFACITINIB CITRATE
     Indication: Rheumatoid arthritis
     Dosage: 11 MG, DAILY
     Route: 048
     Dates: start: 2019
  2. XELJANZ XR [Suspect]
     Active Substance: TOFACITINIB CITRATE
     Indication: Osteoarthritis
     Dosage: 11 MG, 1X/DAY
     Route: 048
  3. METHOTREXATE [Concomitant]
     Active Substance: METHOTREXATE
     Indication: Rheumatoid arthritis
     Dosage: 20 MG, WEEKLY (2.5MG TABLETS; 8 TABLETS BY MOUTH ONCE A WEEK )
     Route: 048
     Dates: start: 1998
  4. PROLIA [Concomitant]
     Active Substance: DENOSUMAB
     Dosage: UNK, CYCLIC (EVERY SIX MONTHS)

REACTIONS (13)
  - Hip fracture [Unknown]
  - Infection [Unknown]
  - Throat irritation [Not Recovered/Not Resolved]
  - Cough [Recovering/Resolving]
  - Mycotic allergy [Unknown]
  - Upper-airway cough syndrome [Recovered/Resolved]
  - Dry eye [Unknown]
  - Lacrimation increased [Unknown]
  - Osteoporosis [Unknown]
  - Weight increased [Unknown]
  - Feeling abnormal [Unknown]
  - Illness [Unknown]
  - Nervousness [Unknown]

NARRATIVE: CASE EVENT DATE: 20191223
